FAERS Safety Report 4462621-X (Version None)
Quarter: 2004Q3

REPORT INFORMATION
  Report Type: 
  Country: None (occurrence: None)
  Receive Date: 20040928
  Receipt Date: 20040920
  Transmission Date: 20050211
  Serious: Yes (Hospitalization, Other)
  Sender: FDA-Public Use
  Company Number: AU-JNJFOC-20040906099

PATIENT
  Age: 80 Year
  Sex: Female
  Weight: 66 kg

DRUGS (12)
  1. PARACETAMOL (PARACETAMOL) TABLET [Suspect]
     Indication: MUSCULOSKELETAL PAIN
     Dosage: 500 MG ONE OR TWO TABLETS WEEKLY; 1 G, 4 IN 1 DAY, ORAL
     Route: 048
  2. CARBAMAZEPINE [Suspect]
     Dosage: 200 MG, 2 IN 1 DAY
  3. VENLAFAXINE (VENLAFAXINE) [Concomitant]
  4. PROCHLORPERAZINE [Concomitant]
  5. METFORMIN HCL [Concomitant]
  6. ATORVASTATIN (ATORVASTATIN) [Concomitant]
  7. NITROGLYCERIN [Concomitant]
  8. ATENOLOL [Concomitant]
  9. OXAZEPAM [Concomitant]
  10. FELODIPINE [Concomitant]
  11. RAMIPRIL [Concomitant]
  12. ASPIRIN/DIPYRIDAMOLE (ASASANTIN) [Concomitant]

REACTIONS (5)
  - ANTINUCLEAR ANTIBODY POSITIVE [None]
  - DEMENTIA [None]
  - FALL [None]
  - HEPATIC FAILURE [None]
  - HEPATOTOXICITY [None]
